FAERS Safety Report 23679805 (Version 2)
Quarter: 2024Q2

REPORT INFORMATION
  Report Type: Report from Study
  Country: US (occurrence: US)
  Receive Date: 20240327
  Receipt Date: 20240611
  Transmission Date: 20240715
  Serious: No
  Sender: FDA-Public Use
  Company Number: US-AstraZeneca-CH-00590391A

PATIENT
  Sex: Female

DRUGS (2)
  1. ULTOMIRIS [Suspect]
     Active Substance: RAVULIZUMAB-CWVZ
     Indication: Myasthenia gravis
     Dosage: UNK, EVERY EIGHT WEEKS
     Route: 065
  2. ULTOMIRIS [Suspect]
     Active Substance: RAVULIZUMAB-CWVZ
     Dosage: UNK, EVERY SEVEN WEEKS
     Route: 065

REACTIONS (3)
  - Drug ineffective [Unknown]
  - Malaise [Unknown]
  - Asthenopia [Unknown]
